FAERS Safety Report 5074322-8 (Version None)
Quarter: 2006Q3

REPORT INFORMATION
  Report Type: 
  Country: None (occurrence: None)
  Receive Date: 20060803
  Receipt Date: 20060725
  Transmission Date: 20061208
  Serious: Yes (Life-Threatening)
  Sender: FDA-Public Use
  Company Number: 228075

PATIENT
  Age: 78 Year
  Sex: Female

DRUGS (1)
  1. ACTIVASE [Suspect]
     Indication: ISCHAEMIC STROKE
     Dosage: 72 MG, SINGLE, INTRAVENOUS
     Route: 042
     Dates: start: 20060721, end: 20060721

REACTIONS (2)
  - EPISTAXIS [None]
  - RESPIRATORY ARREST [None]
